FAERS Safety Report 21035205 (Version 2)
Quarter: 2022Q4

REPORT INFORMATION
  Report Type: Report from Study
  Country: CO (occurrence: CO)
  Receive Date: 20220701
  Receipt Date: 20221010
  Transmission Date: 20230113
  Serious: Yes (Hospitalization, Disabling)
  Sender: FDA-Public Use
  Company Number: CO-ALLERGAN-2210247US

PATIENT
  Sex: Female
  Weight: 60 kg

DRUGS (1)
  1. DEXAMETHASONE [Suspect]
     Active Substance: DEXAMETHASONE
     Indication: Diabetic retinal oedema
     Dosage: 0.7 MG, SINGLE
     Route: 031
     Dates: start: 20220324, end: 20220324

REACTIONS (10)
  - Haemorrhage [Not Recovered/Not Resolved]
  - Vitreous floaters [Not Recovered/Not Resolved]
  - Visual impairment [Recovered/Resolved]
  - Ocular hyperaemia [Not Recovered/Not Resolved]
  - Nausea [Not Recovered/Not Resolved]
  - Anaemia [Recovering/Resolving]
  - Dizziness [Not Recovered/Not Resolved]
  - Pain [Not Recovered/Not Resolved]
  - Headache [Not Recovered/Not Resolved]
  - Eye pain [Recovering/Resolving]

NARRATIVE: CASE EVENT DATE: 20220324
